FAERS Safety Report 9523796 (Version 1)
Quarter: 2013Q3

REPORT INFORMATION
  Report Type: Spontaneous
  Country: US (occurrence: None)
  Receive Date: 20130912
  Receipt Date: 20130912
  Transmission Date: 20140515
  Serious: No
  Sender: FDA-Public Use
  Company Number: None

PATIENT
  Age: 28 Year
  Sex: Female

DRUGS (1)
  1. ENBREL 50MG [Suspect]
     Indication: PSORIATIC ARTHROPATHY
     Dosage: 50 MG  WEEKLY  SUBCUTANEOUS
     Route: 058
     Dates: start: 20120501, end: 20130910

REACTIONS (1)
  - Pregnancy [None]
